FAERS Safety Report 4575333-9 (Version None)
Quarter: 2005Q1

REPORT INFORMATION
  Report Type: 
  Country: None (occurrence: None)
  Receive Date: 20050128
  Receipt Date: 20050128
  Transmission Date: 20050727
  Serious: Yes (Other)
  Sender: FDA-Public Use
  Company Number: None

PATIENT
  Age: 50 Year
  Sex: Female
  Weight: 68.0396 kg

DRUGS (9)
  1. BUPROPION SR 100G [Suspect]
     Indication: DEPRESSION
     Dosage: 100 MG QAM
     Dates: start: 19980401, end: 20040101
  2. MARINOL [Concomitant]
  3. BEXTRA [Concomitant]
  4. FLOVENT [Concomitant]
  5. ZELNORM [Concomitant]
  6. ACIPHEX [Concomitant]
  7. SEREVENT [Concomitant]
  8. HYDROCODONE BITARTRATE + ACETAMINOPHEN [Concomitant]
  9. XANAX [Concomitant]

REACTIONS (6)
  - AGITATION [None]
  - DISTURBANCE IN ATTENTION [None]
  - DYSKINESIA [None]
  - EYE DISORDER [None]
  - FEELING ABNORMAL [None]
  - PHARMACEUTICAL PRODUCT COMPLAINT [None]
